FAERS Safety Report 16968696 (Version 1)
Quarter: 2019Q4

REPORT INFORMATION
  Report Type: Spontaneous
  Country: US (occurrence: US)
  Receive Date: 20191029
  Receipt Date: 20191029
  Transmission Date: 20200122
  Serious: Yes (Hospitalization, Other)
  Sender: FDA-Public Use
  Company Number: US-AUROBINDO-AUR-APL-2019-067841

PATIENT
  Age: 33 Year
  Sex: Female

DRUGS (10)
  1. CIPROFLOXACIN. [Suspect]
     Active Substance: CIPROFLOXACIN
     Indication: PRODUCT USED FOR UNKNOWN INDICATION
     Dosage: UNK
     Route: 048
  2. METRONIDAZOLE. [Suspect]
     Active Substance: METRONIDAZOLE
     Indication: PRODUCT USED FOR UNKNOWN INDICATION
     Dosage: UNK
     Route: 065
  3. VORICONAZOLE. [Suspect]
     Active Substance: VORICONAZOLE
     Dosage: 100 MICROGRAM
     Route: 065
  4. TERBINAFINE. [Suspect]
     Active Substance: TERBINAFINE
     Indication: PRODUCT USED FOR UNKNOWN INDICATION
     Dosage: 250 MILLIGRAM, ONCE A DAY
     Route: 048
  5. VORICONAZOLE. [Suspect]
     Active Substance: VORICONAZOLE
     Dosage: 33 MICROGRAM, 3-5 DAYS IN EACH EYE
     Route: 065
  6. VORICONAZOLE. [Suspect]
     Active Substance: VORICONAZOLE
     Indication: PROPHYLAXIS
     Dosage: 4 MILLIGRAM/KILOGRAM, TWO TIMES A DAY
     Route: 065
  7. AMPHOTERICIN B, LIPOSOME [Suspect]
     Active Substance: AMPHOTERICIN B
     Indication: PRODUCT USED FOR UNKNOWN INDICATION
     Dosage: 5 MILLIGRAM/KILOGRAM
     Route: 042
  8. PIPERACILLIN AND TAZOBACTAM [Suspect]
     Active Substance: PIPERACILLIN SODIUM\TAZOBACTAM SODIUM
     Indication: NEUTROPENIC COLITIS
     Dosage: UNK
     Route: 042
  9. AMPHOTERICIN B, LIPOSOME [Suspect]
     Active Substance: AMPHOTERICIN B
     Dosage: 10 MICROGRAM
     Route: 065
  10. CASPOFUNGIN [Suspect]
     Active Substance: CASPOFUNGIN
     Indication: PRODUCT USED FOR UNKNOWN INDICATION
     Dosage: 50 MILLIGRAM, ONCE A DAY
     Route: 042

REACTIONS (20)
  - Visual acuity reduced [Recovering/Resolving]
  - Respiratory failure [Unknown]
  - Septic shock [Unknown]
  - Febrile neutropenia [Unknown]
  - Pain [Recovered/Resolved]
  - Acute myeloid leukaemia (in remission) [Unknown]
  - Disease progression [Unknown]
  - Fusarium infection [Unknown]
  - Endophthalmitis [Recovering/Resolving]
  - Abscess fungal [Unknown]
  - Transaminases increased [Unknown]
  - Skin mass [Unknown]
  - Staphylococcal infection [Recovered/Resolved]
  - Cytopenia [Unknown]
  - Skin lesion [Recovering/Resolving]
  - Pneumonia bacterial [Unknown]
  - Cholecystitis acute [Recovered/Resolved]
  - Thrombocytopenia [Unknown]
  - Eye abscess [Unknown]
  - Cholecystitis infective [Unknown]
